FAERS Safety Report 9311234 (Version 1)
Quarter: 2013Q2

REPORT INFORMATION
  Report Type: Spontaneous
  Country: US (occurrence: US)
  Receive Date: 20130528
  Receipt Date: 20130528
  Transmission Date: 20140414
  Serious: No
  Sender: FDA-Public Use
  Company Number: US-BAYER-2013-062786

PATIENT
  Sex: Female

DRUGS (1)
  1. MIRENA [Suspect]
     Dosage: 20 MCG/24HR, CONT
     Route: 015
     Dates: start: 2010

REACTIONS (10)
  - Menorrhagia [None]
  - Dyspareunia [None]
  - Unevaluable event [None]
  - Emotional disorder [None]
  - Abnormal behaviour [None]
  - Premenstrual syndrome [None]
  - Depression [None]
  - Aggression [None]
  - Depressed mood [None]
  - Crying [None]
